FAERS Safety Report 5725739-7 (Version None)
Quarter: 2008Q2

REPORT INFORMATION
  Report Type: 
  Country: None (occurrence: None)
  Receive Date: 20080501
  Receipt Date: 20080422
  Transmission Date: 20081010
  Serious: Yes (Life-Threatening, Hospitalization, Disabling)
  Sender: FDA-Public Use
  Company Number: US-MERCK-0804USA00538

PATIENT
  Age: 79 Year
  Sex: Female
  Weight: 68 kg

DRUGS (16)
  1. COZAAR [Suspect]
     Indication: HYPERTENSION
     Route: 048
     Dates: start: 20071101
  2. COZAAR [Suspect]
     Route: 048
     Dates: start: 20000101, end: 20070401
  3. COZAAR [Suspect]
     Route: 048
     Dates: start: 20071204, end: 20080401
  4. TORSEMIDE [Concomitant]
     Route: 065
  5. LIPITOR [Concomitant]
     Route: 065
  6. RANITIDINE [Concomitant]
     Route: 065
  7. NIACIN [Concomitant]
     Route: 065
  8. ALLOPURINOL [Concomitant]
     Route: 065
  9. LEVOTHYROXINE SODIUM [Concomitant]
     Route: 065
  10. LEVOTHYROXINE SODIUM [Concomitant]
     Route: 065
  11. SPIRONOLACTONE [Concomitant]
     Route: 065
  12. ARIMIDEX [Concomitant]
     Route: 065
  13. METOPROLOL [Concomitant]
     Route: 065
  14. MAGNESIUM (UNSPECIFIED) [Concomitant]
     Route: 065
  15. FOLBEE [Concomitant]
     Route: 065
  16. ASPIRIN [Concomitant]
     Route: 065
     Dates: end: 20070401

REACTIONS (8)
  - ANAEMIA [None]
  - CORONARY ARTERY DISEASE [None]
  - INCREASED TENDENCY TO BRUISE [None]
  - PNEUMONIA [None]
  - PURPURA [None]
  - SEPSIS [None]
  - THROMBOCYTOPENIA [None]
  - WRONG TECHNIQUE IN DRUG USAGE PROCESS [None]
